FAERS Safety Report 18883392 (Version 1)
Quarter: 2021Q1

REPORT INFORMATION
  Report Type: Spontaneous
  Country: US (occurrence: US)
  Receive Date: 20210211
  Receipt Date: 20210211
  Transmission Date: 20210420
  Serious: No
  Sender: FDA-Public Use
  Company Number: US-PERRIGO-20US010986

PATIENT
  Age: 82 Year
  Sex: Female
  Weight: 56.24 kg

DRUGS (20)
  1. CRANBERRY CONCENTRATE              /08793201/ [Concomitant]
     Indication: PROPHYLAXIS URINARY TRACT INFECTION
     Dosage: UNK, UNK
     Route: 048
  2. FELODIPINE. [Concomitant]
     Active Substance: FELODIPINE
     Indication: HYPERTENSION
     Dosage: UNK, UNK
     Route: 048
     Dates: start: 202002
  3. CETIRIZINE HYDROCHLORIDE. [Suspect]
     Active Substance: CETIRIZINE HYDROCHLORIDE
     Indication: EYE PRURITUS
     Dosage: 10 MG, SINGLE
     Route: 048
     Dates: start: 202005, end: 202005
  4. VITAMIN D                          /00107901/ [Concomitant]
     Active Substance: ERGOCALCIFEROL
     Indication: PRODUCT USED FOR UNKNOWN INDICATION
     Dosage: UNK, UNK
     Route: 048
  5. MELATONIN [Concomitant]
     Active Substance: MELATONIN
     Indication: INSOMNIA
     Dosage: UNK, UNK
     Route: 048
     Dates: start: 2018
  6. CETIRIZINE HYDROCHLORIDE. [Suspect]
     Active Substance: CETIRIZINE HYDROCHLORIDE
     Indication: PRURITUS
  7. QUETIAPINE. [Concomitant]
     Active Substance: QUETIAPINE
     Indication: INSOMNIA
     Dosage: UNK, UNK
     Route: 048
     Dates: start: 201810
  8. PROPAFENONE. [Concomitant]
     Active Substance: PROPAFENONE
     Indication: TACHYCARDIA
     Dosage: UNK, UNK
     Route: 048
     Dates: start: 2002
  9. ASPIRIN                            /00002701/ [Concomitant]
     Active Substance: ASPIRIN
     Indication: PROPHYLAXIS
     Dosage: UNK, UNK
     Route: 048
     Dates: start: 2001
  10. CETIRIZINE HYDROCHLORIDE. [Suspect]
     Active Substance: CETIRIZINE HYDROCHLORIDE
     Indication: NASAL PRURITUS
     Dosage: 10 MG, NIGHTLY
     Route: 048
     Dates: start: 20200726, end: 20200727
  11. LEVOTHYROXINE. [Concomitant]
     Active Substance: LEVOTHYROXINE
     Indication: HYPOTHYROIDISM
     Dosage: UNK, UNK
     Route: 048
  12. METOPROLOL                         /00376902/ [Concomitant]
     Active Substance: METOPROLOL TARTRATE
     Indication: TACHYCARDIA
     Dosage: UNK, UNK
     Route: 048
     Dates: start: 2018
  13. L?LYSINE                           /00919901/ [Concomitant]
     Active Substance: LYSINE
     Indication: PROPHYLAXIS
  14. ONE A DAY MULTI VITAMIN + MINERALS /08065901/ [Concomitant]
     Indication: SUPPLEMENTATION THERAPY
     Dosage: UNK, UNK
     Route: 048
     Dates: start: 202006
  15. CALCIUM CITRATE [Concomitant]
     Active Substance: CALCIUM CITRATE
     Indication: SUPPLEMENTATION THERAPY
     Dosage: UNK, UNK
     Route: 048
  16. VITAMIN C [Concomitant]
     Active Substance: ASCORBIC ACID
     Indication: PROPHYLAXIS
     Dosage: UNK, UNK
     Route: 048
     Dates: start: 202006
  17. MAGNESIUM [Concomitant]
     Active Substance: MAGNESIUM
     Indication: INSOMNIA
     Dosage: UNK, UNK
     Route: 048
     Dates: start: 2018
  18. BIOTIN [Concomitant]
     Active Substance: BIOTIN
     Indication: SUPPLEMENTATION THERAPY
     Dosage: UNK, UNK
     Route: 048
     Dates: start: 202006
  19. ATORVASTATIN                       /01326102/ [Concomitant]
     Active Substance: ATORVASTATIN
     Indication: BLOOD CHOLESTEROL
     Dosage: UNK, UNK
     Route: 048
     Dates: start: 201810
  20. L?LYSINE                           /00919901/ [Concomitant]
     Active Substance: LYSINE
     Indication: ORAL HERPES
     Dosage: UNK, PRN
     Route: 048

REACTIONS (5)
  - Expired product administered [Recovered/Resolved]
  - Dizziness [Not Recovered/Not Resolved]
  - Balance disorder [Not Recovered/Not Resolved]
  - Off label use [Recovered/Resolved]
  - Product administered to patient of inappropriate age [Recovered/Resolved]

NARRATIVE: CASE EVENT DATE: 202005
